FAERS Safety Report 6935622-7 (Version None)
Quarter: 2010Q3

REPORT INFORMATION
  Report Type: 
  Country: None (occurrence: None)
  Receive Date: 20100823
  Receipt Date: 20100810
  Transmission Date: 20110219
  Serious: Yes (Hospitalization)
  Sender: FDA-Public Use
  Company Number: PT-JNJFOC-20100803924

PATIENT
  Age: 28 Year
  Sex: Male

DRUGS (6)
  1. DOXORUBICIN HYDROCHLORIDE [Suspect]
     Indication: HODGKIN'S DISEASE
     Dosage: CYCLE 2
     Route: 065
  2. DOXORUBICIN HYDROCHLORIDE [Suspect]
     Dosage: WAS ON 5TH CYCLE WHEN HOSPITALIZED IN DEC 2009
     Route: 065
  3. GEMCITABINE [Suspect]
     Indication: HODGKIN'S DISEASE
     Dosage: CYCLE 2
     Route: 065
  4. GEMCITABINE [Suspect]
     Route: 065
  5. VINCRISTINE [Suspect]
     Indication: HODGKIN'S DISEASE
     Dosage: CYCLE 2
     Route: 065
  6. VINCRISTINE [Suspect]
     Route: 065

REACTIONS (3)
  - MUSCULOSKELETAL PAIN [None]
  - NECK PAIN [None]
  - PLEURAL EFFUSION [None]
